FAERS Safety Report 7406807-0 (Version None)
Quarter: 2011Q2

REPORT INFORMATION
  Report Type: 
  Country: None (occurrence: None)
  Receive Date: 20110406
  Receipt Date: 20110406
  Transmission Date: 20111010
  Serious: Yes (Other)
  Sender: FDA-Public Use
  Company Number: None

PATIENT
  Age: 46 Year
  Sex: Female
  Weight: 68.0396 kg

DRUGS (1)
  1. REMBRANDT 2 HOUR WHITENING KIT TOPICAL [Suspect]
     Indication: DENTAL COSMETIC PROCEDURE
     Dosage: TOPICAL

REACTIONS (2)
  - SELF-MEDICATION [None]
  - THERMAL BURN [None]
